FAERS Safety Report 23319284 (Version 1)
Quarter: 2023Q4

REPORT INFORMATION
  Report Type: Spontaneous
  Country: DE (occurrence: DE)
  Receive Date: 20231220
  Receipt Date: 20231220
  Transmission Date: 20240110
  Serious: Yes (Life-Threatening, Hospitalization, Other)
  Sender: FDA-Public Use
  Company Number: DE-DCGMA-22200082

PATIENT

DRUGS (9)
  1. PREDNISOLONE [Suspect]
     Active Substance: PREDNISOLONE
     Indication: Anaphylactic reaction
     Route: 042
     Dates: start: 20221208
  2. FOSAPREPITANT [Concomitant]
     Active Substance: FOSAPREPITANT
     Indication: Breast cancer
     Route: 065
  3. EPIRUBICIN [Concomitant]
     Active Substance: EPIRUBICIN
     Indication: Breast cancer
     Route: 065
  4. MESNA [Concomitant]
     Active Substance: MESNA
     Indication: Breast cancer
     Route: 065
  5. DIMETHINDENE MALEATE [Suspect]
     Active Substance: DIMETHINDENE MALEATE
     Indication: Anaphylactic reaction
     Route: 042
     Dates: start: 20221208
  6. CIMETIDINE HYDROCHLORIDE [Suspect]
     Active Substance: CIMETIDINE HYDROCHLORIDE
     Indication: Anaphylactic reaction
     Route: 042
     Dates: start: 20221208
  7. TRASTUZUMAB [Concomitant]
     Active Substance: TRASTUZUMAB
     Indication: Breast cancer
     Route: 065
  8. CYCLOPHOSPHAMIDE [Concomitant]
     Active Substance: CYCLOPHOSPHAMIDE
     Indication: Breast cancer
     Route: 065
  9. PERTUZUMAB [Concomitant]
     Active Substance: PERTUZUMAB
     Indication: Breast cancer
     Route: 065

REACTIONS (1)
  - Sinus arrest [Recovered/Resolved]

NARRATIVE: CASE EVENT DATE: 20221209
